FAERS Safety Report 21974481 (Version 1)
Quarter: 2023Q1

REPORT INFORMATION
  Report Type: Spontaneous
  Country: US (occurrence: None)
  Receive Date: 20230208
  Receipt Date: 20230208
  Transmission Date: 20230417
  Serious: Yes (Death)
  Sender: FDA-Public Use
  Company Number: None

PATIENT
  Age: 70 Year
  Sex: Female
  Weight: 72.62 kg

DRUGS (18)
  1. CAPECITABINE [Suspect]
     Active Substance: CAPECITABINE
     Indication: Pancreatic carcinoma
     Dosage: FREQUENCY : TWICE A DAY;?
     Route: 048
     Dates: start: 20221215
  2. ACETAMINOPHEN [Concomitant]
  3. ATORVASTATIN [Concomitant]
  4. CREON [Concomitant]
     Active Substance: PANCRELIPASE AMYLASE\PANCRELIPASE LIPASE\PANCRELIPASE PROTEASE
  5. DOCUSATE SODIUM [Concomitant]
  6. ENOXAPARIN [Concomitant]
  7. HEPARIN [Concomitant]
  8. MARINOL [Concomitant]
     Active Substance: DRONABINOL
  9. MEMANTINE [Concomitant]
  10. METFORMIN [Concomitant]
  11. METOPROLOL SUCCINATE ER [Concomitant]
  12. METOPROLOL [Concomitant]
     Active Substance: METOPROLOL
  13. MIRALAX MIX-IN [Concomitant]
  14. VITAMINS [Concomitant]
     Active Substance: VITAMINS
  15. NAMENDA [Concomitant]
     Active Substance: MEMANTINE HYDROCHLORIDE
  16. PHENYLEPHRINE [Concomitant]
     Active Substance: PHENYLEPHRINE HYDROCHLORIDE
  17. VITAMIN C [Concomitant]
  18. ZINC [Concomitant]

REACTIONS (1)
  - Death [None]
